FAERS Safety Report 18294018 (Version 1)
Quarter: 2020Q3

REPORT INFORMATION
  Report Type: Spontaneous
  Country: US (occurrence: US)
  Receive Date: 20200922
  Receipt Date: 20200922
  Transmission Date: 20201103
  Serious: Yes (Other)
  Sender: FDA-Public Use
  Company Number: None

PATIENT
  Age: 66 Year
  Sex: Female
  Weight: 62.5 kg

DRUGS (2)
  1. CEFEPIME [Suspect]
     Active Substance: CEFEPIME HYDROCHLORIDE
     Indication: CULTURE POSITIVE
     Route: 042
     Dates: start: 20200910, end: 20200911
  2. CEFEPIME [Suspect]
     Active Substance: CEFEPIME HYDROCHLORIDE
     Indication: BRONCHOALVEOLAR LAVAGE
     Route: 042
     Dates: start: 20200910, end: 20200911

REACTIONS (1)
  - Vomiting [None]

NARRATIVE: CASE EVENT DATE: 20200911
